FAERS Safety Report 24990022 (Version 1)
Quarter: 2025Q1

REPORT INFORMATION
  Report Type: Spontaneous
  Country: US (occurrence: None)
  Receive Date: 20250219
  Receipt Date: 20250219
  Transmission Date: 20250409
  Serious: Yes (Other)
  Sender: FDA-CTU
  Company Number: None

PATIENT
  Age: 45 Year
  Sex: Female
  Weight: 72.9 kg

DRUGS (4)
  1. BIVIGAM [Suspect]
     Active Substance: HUMAN IMMUNOGLOBULIN G
     Indication: Multifocal motor neuropathy
     Dosage: FREQUENCY : EVERY THREE WEEKS;?
     Route: 041
  2. Diphenhydramine 25mg PO premed [Concomitant]
     Dates: start: 20250215, end: 20250215
  3. Diphenhydramine 50mg IV [Concomitant]
     Dates: start: 20250215, end: 20250215
  4. Solu Cortef 100mg IV [Concomitant]
     Dates: start: 20250215, end: 20250215

REACTIONS (2)
  - Urticaria [None]
  - Pruritus [None]

NARRATIVE: CASE EVENT DATE: 20250215
